FAERS Safety Report 9016818 (Version 1)
Quarter: 2013Q1

REPORT INFORMATION
  Report Type: Spontaneous
  Country: US (occurrence: US)
  Receive Date: 20130117
  Receipt Date: 20130117
  Transmission Date: 20140127
  Serious: No
  Sender: FDA-Public Use
  Company Number: US-MYLANLABS-2012S1013485

PATIENT
  Age: 56 Year
  Sex: Female
  Weight: 81.65 kg

DRUGS (1)
  1. BALSALAZIDE DISODIUM [Suspect]
     Indication: COLITIS ULCERATIVE
     Dates: start: 201201

REACTIONS (2)
  - Oesophageal ulcer [Recovered/Resolved]
  - Dyspepsia [Recovered/Resolved]
